FAERS Safety Report 4884870-9 (Version None)
Quarter: 2006Q1

REPORT INFORMATION
  Report Type: 
  Country: None (occurrence: None)
  Receive Date: 20060119
  Receipt Date: 20060112
  Transmission Date: 20060701
  Serious: Yes (Life-Threatening)
  Sender: FDA-Public Use
  Company Number: PL-GLAXOSMITHKLINE-B0406560A

PATIENT
  Age: 51 Year
  Sex: Male

DRUGS (8)
  1. FONDAPARINUX SODIUM [Suspect]
     Dosage: 2.5MG PER DAY
     Route: 058
     Dates: start: 20040603
  2. ASPIRIN [Concomitant]
  3. ACLOTIN [Concomitant]
     Dosage: 250MG TWICE PER DAY
  4. UNFRACTIONATED HEPARIN [Concomitant]
     Dates: start: 20040604
  5. LESCOL [Concomitant]
  6. BISOCARD [Concomitant]
  7. CAVINTON [Concomitant]
     Dosage: 5MG THREE TIMES PER DAY
  8. BENALAPRIL [Concomitant]
     Dosage: 2.5MG TWICE PER DAY

REACTIONS (1)
  - CORONARY ARTERY THROMBOSIS [None]
